FAERS Safety Report 7104314-6 (Version None)
Quarter: 2010Q4

REPORT INFORMATION
  Report Type: 
  Country: None (occurrence: None)
  Receive Date: 20101115
  Receipt Date: 20101105
  Transmission Date: 20110411
  Serious: Yes (Hospitalization, Disabling)
  Sender: FDA-Public Use
  Company Number: US-ALLERGAN-1013197US

PATIENT
  Age: 44 Year
  Sex: Male
  Weight: 93.288 kg

DRUGS (20)
  1. BOTOXA? [Suspect]
     Indication: BACK PAIN
     Dosage: 200 UNK, SINGLE
     Route: 030
     Dates: start: 20070713, end: 20070713
  2. BOTOXA? [Suspect]
     Indication: MUSCLE SPASMS
     Dosage: 200 UNK, SINGLE
     Route: 030
     Dates: start: 20071003, end: 20071003
  3. BOTOXA? [Suspect]
     Dosage: 200 UNK, SINGLE
     Route: 030
     Dates: start: 20080108, end: 20080108
  4. BOTOXA? [Suspect]
     Dosage: 200 UNK, SINGLE
     Route: 030
     Dates: start: 20080410, end: 20080410
  5. BOTOXA? [Suspect]
     Dosage: 200 UNK, SINGLE
     Route: 030
     Dates: start: 20080708, end: 20080708
  6. BOTOXA? [Suspect]
     Dosage: 200 UNITS, SINGLE
     Route: 030
     Dates: start: 20081014, end: 20081014
  7. PREVACID [Concomitant]
     Dosage: 30 MG, QHS
  8. ASPIRIN [Concomitant]
     Dosage: 81 MG, QD
     Route: 048
  9. BUSPIRONE HCL [Concomitant]
     Dosage: 10 MG, BID
     Route: 048
  10. CARDIZEM CD [Concomitant]
     Dosage: 360 MG, QD
  11. FIBERCON [Concomitant]
     Dosage: 1250 UNK, BID
  12. FISH OIL [Concomitant]
     Dosage: 1200 MG, UNK
  13. HYDROCHLOROTHIAZIDE [Concomitant]
     Dosage: 12.5 MG, UNK
  14. LEVBID [Concomitant]
     Dosage: 0.75 MG, UNK
  15. SKELAXIN [Concomitant]
     Dosage: 60 MG, QD
  16. MULTI-VITAMIN [Concomitant]
  17. MIRALAX [Concomitant]
     Dosage: 17 G, UNK
  18. VALTREX [Concomitant]
     Dosage: 1000 MG, QD
     Route: 048
  19. ISOMER E [Concomitant]
     Dosage: 400 MG, QD
  20. XANAX [Concomitant]
     Dosage: 0.25 MG, PRN
     Route: 048

REACTIONS (3)
  - ASTHENIA [None]
  - BOTULISM [None]
  - GUILLAIN-BARRE SYNDROME [None]
